FAERS Safety Report 9267183 (Version 3)
Quarter: 2013Q2

REPORT INFORMATION
  Report Type: Spontaneous
  Country: US (occurrence: US)
  Receive Date: 20130502
  Receipt Date: 20130617
  Transmission Date: 20140414
  Serious: No
  Sender: FDA-Public Use
  Company Number: US-PFIZER INC-2013136222

PATIENT
  Age: 86 Year
  Sex: Female
  Weight: 48.53 kg

DRUGS (2)
  1. LIPITOR [Suspect]
     Indication: BLOOD CHOLESTEROL INCREASED
     Dosage: 40 MG, ONCE A DAY
     Route: 048
  2. SYNTHROID [Concomitant]
     Dosage: UNK

REACTIONS (3)
  - Fall [Unknown]
  - Gait disturbance [Unknown]
  - Malaise [Unknown]
